FAERS Safety Report 4662959-7 (Version None)
Quarter: 2005Q2

REPORT INFORMATION
  Report Type: 
  Country: None (occurrence: None)
  Receive Date: 20050511
  Receipt Date: 20041202
  Transmission Date: 20051028
  Serious: No
  Sender: FDA-Public Use
  Company Number: ZONI0020702

PATIENT
  Age: 17 Year
  Sex: Female

DRUGS (8)
  1. ZONEGRAN [Suspect]
     Indication: COMPLEX PARTIAL SEIZURES
     Dosage: SEE IMAGE
     Route: 048
     Dates: start: 20040901, end: 20040901
  2. ZONEGRAN [Suspect]
     Indication: COMPLEX PARTIAL SEIZURES
     Dosage: SEE IMAGE
     Route: 048
     Dates: start: 20040901, end: 20040901
  3. ZONEGRAN [Suspect]
     Indication: COMPLEX PARTIAL SEIZURES
     Dosage: SEE IMAGE
     Route: 048
     Dates: start: 20041012, end: 20041001
  4. ZONEGRAN [Suspect]
     Indication: COMPLEX PARTIAL SEIZURES
     Dosage: SEE IMAGE
     Route: 048
     Dates: start: 20040901, end: 20041101
  5. ZONEGRAN [Suspect]
     Indication: COMPLEX PARTIAL SEIZURES
     Dosage: SEE IMAGE
     Route: 048
     Dates: start: 20041001, end: 20041205
  6. ZONEGRAN [Suspect]
     Indication: COMPLEX PARTIAL SEIZURES
     Dosage: SEE IMAGE
     Route: 048
     Dates: start: 20041206
  7. PHENOBARBITAL [Concomitant]
  8. TRILEPTAL [Concomitant]

REACTIONS (2)
  - GRAND MAL CONVULSION [None]
  - LETHARGY [None]
